FAERS Safety Report 5821590-8 (Version None)
Quarter: 2008Q3

REPORT INFORMATION
  Report Type: 
  Country: None (occurrence: None)
  Receive Date: 20080724
  Receipt Date: 20080715
  Transmission Date: 20090109
  Serious: Yes (Other)
  Sender: FDA-Public Use
  Company Number: DE-BAYER-200817651GPV

PATIENT
  Age: 45 Year
  Sex: Female
  Weight: 80 kg

DRUGS (4)
  1. MIRENA [Suspect]
     Indication: CONTRACEPTION
     Route: 015
     Dates: start: 20080401, end: 20080501
  2. ENOXOR [Concomitant]
     Indication: POST PROCEDURAL COMPLICATION
     Route: 048
     Dates: start: 20080414, end: 20080418
  3. TETRAZEPAM [Concomitant]
     Indication: BACK PAIN
     Route: 048
     Dates: start: 20080421, end: 20080424
  4. IBUPROFEN TABLETS [Concomitant]
     Indication: BACK PAIN
     Dosage: TOTAL DAILY DOSE: 1200 MG
     Route: 048
     Dates: start: 20080421, end: 20080424

REACTIONS (6)
  - BACK PAIN [None]
  - CARDIOVASCULAR DISORDER [None]
  - DYSPHAGIA [None]
  - FACIAL PAIN [None]
  - POST PROCEDURAL COMPLICATION [None]
  - URTICARIA [None]
